FAERS Safety Report 14524337 (Version 1)
Quarter: 2018Q1

REPORT INFORMATION
  Report Type: Spontaneous
  Country: US (occurrence: US)
  Receive Date: 20180213
  Receipt Date: 20180213
  Transmission Date: 20180509
  Serious: No
  Sender: FDA-Public Use
  Company Number: US-PFIZER INC-2018060056

PATIENT
  Age: 4 Decade
  Sex: Female

DRUGS (2)
  1. TOFACITINIB [Suspect]
     Active Substance: TOFACITINIB
     Dosage: UNK
  2. SIROLIMUS. [Concomitant]
     Active Substance: SIROLIMUS
     Indication: IMMUNE SYSTEM DISORDER
     Dosage: UNK

REACTIONS (2)
  - Therapeutic response unexpected [Unknown]
  - Hair growth abnormal [Unknown]
